FAERS Safety Report 6433969-4 (Version None)
Quarter: 2009Q4

REPORT INFORMATION
  Report Type: 
  Country: None (occurrence: None)
  Receive Date: 20091110
  Receipt Date: 20091104
  Transmission Date: 20100525
  Serious: Yes (Death)
  Sender: FDA-Public Use
  Company Number: US-ELI_LILLY_AND_COMPANY-US200910005829

PATIENT
  Sex: Male
  Weight: 56.327 kg

DRUGS (8)
  1. PEMETREXED [Suspect]
     Indication: NON-SMALL CELL LUNG CANCER STAGE IV
     Dosage: 500 MG/M2, OTHER
     Route: 042
     Dates: start: 20091009
  2. CARBOPLATIN [Suspect]
     Indication: NON-SMALL CELL LUNG CANCER STAGE IV
     Dosage: 6 D/F, MONTHLY (1/M)
     Route: 042
     Dates: start: 20091009
  3. BEVACIZUMAB [Suspect]
     Indication: NON-SMALL CELL LUNG CANCER STAGE IV
     Dosage: 15 MG/KG, OTHER
     Route: 042
     Dates: start: 20091009
  4. ARANESP [Concomitant]
     Indication: ANAEMIA
     Dosage: 300 UG, UNK
     Dates: start: 20091016, end: 20091016
  5. HYDROCODONE BITARTRATE AND ACETAMINOPHEN [Concomitant]
     Indication: PAIN
     Dates: start: 20091009
  6. DEXAMETHASONE [Concomitant]
     Indication: NAUSEA
     Dates: start: 20091008
  7. ONDANSETRON [Concomitant]
     Indication: NAUSEA
     Dosage: UNK, UNK
     Dates: start: 20091002
  8. EMEND [Concomitant]
     Indication: NAUSEA
     Dates: start: 20091002

REACTIONS (1)
  - MYOCARDIAL INFARCTION [None]
